FAERS Safety Report 15020985 (Version 10)
Quarter: 2021Q2

REPORT INFORMATION
  Report Type: Report from Study
  Country: US (occurrence: US)
  Receive Date: 20180618
  Receipt Date: 20210506
  Transmission Date: 20210716
  Serious: Yes (Death, Hospitalization)
  Sender: FDA-Public Use
  Company Number: US-ROCHE-2140681

PATIENT
  Age: 57 Year
  Sex: Male
  Weight: 71 kg

DRUGS (10)
  1. LENALIDOMIDE [Suspect]
     Active Substance: LENALIDOMIDE
     Route: 048
     Dates: start: 20180623
  2. IBRUTINIB [Suspect]
     Active Substance: IBRUTINIB
     Route: 048
     Dates: start: 20180622
  3. OBINUTUZUMAB. [Suspect]
     Active Substance: OBINUTUZUMAB
     Dosage: CYCLE 2, DAY 1
     Route: 042
     Dates: start: 20180122
  4. PREDNISONE. [Suspect]
     Active Substance: PREDNISONE
     Indication: DIFFUSE LARGE B-CELL LYMPHOMA
     Dosage: DAYS 1?7, AT A DOSE OF 100MG; EVERY 21 DAYS FOR UP TO 6 CYCLES
     Route: 048
     Dates: start: 20180601, end: 20180607
  5. LENALIDOMIDE [Suspect]
     Active Substance: LENALIDOMIDE
     Dosage: ON DAYS 10
     Route: 048
     Dates: start: 20180610
  6. LENALIDOMIDE [Suspect]
     Active Substance: LENALIDOMIDE
     Dosage: ON DAYS 11 AND WOULD CONTINUE TO DAY 14 (14/JUN/2018)
     Route: 048
     Dates: start: 20180610
  7. OBINUTUZUMAB. [Suspect]
     Active Substance: OBINUTUZUMAB
     Indication: DIFFUSE LARGE B-CELL LYMPHOMA
     Dosage: DAYS 1 AND 2, AT A DOSE OF 1000 MG; EVERY 21 DAYS FOR UP TO 6 CYCLES
     Route: 042
     Dates: start: 20180601, end: 20180622
  8. PREDNISONE. [Suspect]
     Active Substance: PREDNISONE
     Route: 048
     Dates: start: 20180622
  9. IBRUTINIB [Suspect]
     Active Substance: IBRUTINIB
     Indication: DIFFUSE LARGE B-CELL LYMPHOMA
     Dosage: DAYS 1?14 (RECEIVED TILL DAY 11), AT A DOSE OF 560MG; EVERY 21 DAYS FOR UP TO 6 CYCLES?WOULD CONTINU
     Route: 048
     Dates: start: 20180601, end: 20180614
  10. LENALIDOMIDE [Suspect]
     Active Substance: LENALIDOMIDE
     Indication: DIFFUSE LARGE B-CELL LYMPHOMA
     Dosage: ON DAYS 1?9
     Route: 048
     Dates: start: 20180601, end: 20180609

REACTIONS (3)
  - Abdominal pain [Recovered/Resolved]
  - Pyrexia [Recovered/Resolved]
  - Fall [Fatal]

NARRATIVE: CASE EVENT DATE: 20180611
